FAERS Safety Report 26126940 (Version 1)
Quarter: 2025Q4

REPORT INFORMATION
  Report Type: Spontaneous
  Country: CN (occurrence: CN)
  Receive Date: 20251205
  Receipt Date: 20251205
  Transmission Date: 20260118
  Serious: Yes (Other)
  Sender: MERCK SHARP & DOHME LLC
  Company Number: CN-009507513-2357817

PATIENT
  Age: 47 Year
  Sex: Male

DRUGS (3)
  1. TEMOZOLOMIDE [Suspect]
     Active Substance: TEMOZOLOMIDE
     Indication: Astrocytoma
     Dosage: WITH 150 MG ONCE DAILY (QD) TAKEN ON WEEKDAYS AND 100 MG QD ON WEEKENDS
     Route: 048
  2. TEMOZOLOMIDE [Suspect]
     Active Substance: TEMOZOLOMIDE
     Indication: Astrocytoma
     Dosage: TIME INTERVAL: CYCLICAL: SECOND AND THIRD CYCLE: ACTUAL DOSE 350 MG QD FROM DAY 4 TO DAY 6, 400 M...
     Route: 048
  3. TEMOZOLOMIDE [Suspect]
     Active Substance: TEMOZOLOMIDE
     Indication: Astrocytoma
     Dosage: TIME INTERVAL: CYCLICAL: FIRST CYCLE: ACTUAL DOSE 250 MG QD FROM DAY 4 TO DAY 6, 300 MG QD ON DAY...
     Route: 048

REACTIONS (3)
  - Tumour pseudoprogression [Unknown]
  - Central nervous system lesion [Unknown]
  - Product use in unapproved indication [Unknown]
